FAERS Safety Report 4761126-6 (Version None)
Quarter: 2005Q3

REPORT INFORMATION
  Report Type: 
  Country: None (occurrence: None)
  Receive Date: 20050902
  Receipt Date: 20050902
  Transmission Date: 20060218
  Serious: No
  Sender: FDA-Public Use
  Company Number: None

PATIENT
  Age: 70 Year
  Sex: Female
  Weight: 51.2565 kg

DRUGS (2)
  1. REMERON [Suspect]
     Indication: DEPRESSION
     Dosage: 15MG   DAILY   PO
     Route: 048
     Dates: start: 20050810, end: 20050822
  2. REMERON [Suspect]
     Indication: SOMNOLENCE
     Dosage: 15MG   DAILY   PO
     Route: 048
     Dates: start: 20050810, end: 20050822

REACTIONS (2)
  - BREAST PAIN [None]
  - BREAST TENDERNESS [None]
